FAERS Safety Report 9440865 (Version 1)
Quarter: 2013Q3

REPORT INFORMATION
  Report Type: Spontaneous
  Country: US (occurrence: None)
  Receive Date: 20130801
  Receipt Date: 20130801
  Transmission Date: 20140515
  Serious: Yes (Other)
  Sender: FDA-Public Use
  Company Number: 2013AP006908

PATIENT
  Sex: Female

DRUGS (4)
  1. ALENDRONATE SODIUM TABLETS [Suspect]
     Indication: OSTEOPOROSIS
     Dates: start: 200804, end: 201003
  2. ALENDRONATE SODIUM TABLETS [Suspect]
     Indication: OSTEITIS DEFORMANS
     Dates: start: 200804, end: 201003
  3. ALENDRONATE SODIUM TABLETS [Suspect]
     Indication: OSTEOPOROSIS
     Dates: start: 200402, end: 200905
  4. ALENDRONATE SODIUM TABLETS [Suspect]
     Indication: OSTEITIS DEFORMANS
     Dates: start: 200402, end: 200905

REACTIONS (9)
  - Lower limb fracture [None]
  - Femur fracture [None]
  - Bone density decreased [None]
  - Pain [None]
  - Emotional distress [None]
  - Anxiety [None]
  - Quality of life decreased [None]
  - Low turnover osteopathy [None]
  - Injury [None]
